FAERS Safety Report 9203513 (Version 1)
Quarter: 2013Q1

REPORT INFORMATION
  Report Type: Spontaneous
  Country: US (occurrence: None)
  Receive Date: 20130329
  Receipt Date: 20130329
  Transmission Date: 20140127
  Serious: Yes (Hospitalization)
  Sender: FDA-Public Use
  Company Number: None

PATIENT
  Age: 66 Year
  Sex: Male
  Weight: 76.4 kg

DRUGS (1)
  1. CISPLATIN [Suspect]
     Indication: ANAL CANCER
     Dosage: 200 MG ONCE IV
     Route: 042
     Dates: start: 20130129, end: 20130129

REACTIONS (1)
  - Blood creatinine increased [None]
